FAERS Safety Report 11246329 (Version 2)
Quarter: 2016Q2

REPORT INFORMATION
  Report Type: Spontaneous
  Country: US (occurrence: US)
  Receive Date: 20150708
  Receipt Date: 20160624
  Transmission Date: 20160815
  Serious: No
  Sender: FDA-Public Use
  Company Number: US-SUN PHARMACEUTICAL INDUSTRIES LTD-2015US-94995

PATIENT
  Sex: Male

DRUGS (1)
  1. HALOG [Suspect]
     Active Substance: HALCINONIDE
     Indication: ECZEMA
     Dosage: UNK, BID
     Route: 065
     Dates: start: 20150220

REACTIONS (1)
  - Rash [Not Recovered/Not Resolved]
